FAERS Safety Report 4869046-3 (Version None)
Quarter: 2005Q4

REPORT INFORMATION
  Report Type: 
  Country: None (occurrence: None)
  Receive Date: 20051220
  Receipt Date: 20051206
  Transmission Date: 20060501
  Serious: Yes (Hospitalization)
  Sender: FDA-Public Use
  Company Number: 2005-02715

PATIENT
  Age: 71 Year
  Sex: Male

DRUGS (1)
  1. IMMUCYST [Suspect]
     Indication: BLADDER CANCER

REACTIONS (3)
  - CONSTIPATION [None]
  - POLLAKIURIA [None]
  - URETHRAL PAIN [None]
